FAERS Safety Report 14222037 (Version 2)
Quarter: 2018Q1

REPORT INFORMATION
  Report Type: Report from Study
  Country: US (occurrence: US)
  Receive Date: 20171124
  Receipt Date: 20180222
  Transmission Date: 20180508
  Serious: Yes (Hospitalization)
  Sender: FDA-Public Use
  Company Number: US-AMGEN-USASL2017174051

PATIENT
  Age: 76 Year
  Sex: Female

DRUGS (2)
  1. REPATHA [Suspect]
     Active Substance: EVOLOCUMAB
     Indication: HYPERCHOLESTEROLAEMIA
  2. REPATHA [Suspect]
     Active Substance: EVOLOCUMAB
     Indication: BLOOD CHOLESTEROL INCREASED
     Dosage: 140 MG, QMO
     Route: 065

REACTIONS (8)
  - Peripheral swelling [Unknown]
  - Sinusitis [Unknown]
  - Adverse event [Unknown]
  - Hypertension [Unknown]
  - Off label use [Unknown]
  - Cardiac disorder [Unknown]
  - Hypersensitivity [Not Recovered/Not Resolved]
  - Anxiety [Unknown]
